FAERS Safety Report 19190441 (Version 2)
Quarter: 2021Q2

REPORT INFORMATION
  Report Type: Spontaneous
  Country: US (occurrence: US)
  Receive Date: 20210428
  Receipt Date: 20210527
  Transmission Date: 20210717
  Serious: No
  Sender: FDA-Public Use
  Company Number: US-GILEAD-2021-0523965

PATIENT
  Sex: Female

DRUGS (2)
  1. MODERNA COVID?19 VACCINE [Concomitant]
     Active Substance: CX-024414
  2. SOFOSBUVIR;VELPATASVIR [Suspect]
     Active Substance: SOFOSBUVIR\VELPATASVIR
     Indication: CHRONIC HEPATITIS C
     Dosage: 1 DOSAGE FORM, QD
     Route: 048

REACTIONS (2)
  - Musculoskeletal stiffness [Unknown]
  - Fatigue [Unknown]
